FAERS Safety Report 25961937 (Version 1)
Quarter: 2025Q4

REPORT INFORMATION
  Report Type: Spontaneous
  Country: EU (occurrence: EU)
  Receive Date: 20251027
  Receipt Date: 20251027
  Transmission Date: 20260117
  Serious: Yes (Other)
  Sender: MYLAN
  Company Number: EU-MYLANLABS-2025M1089913

PATIENT
  Age: 4 Month
  Sex: Male

DRUGS (6)
  1. PREDNISONE [Suspect]
     Active Substance: PREDNISONE
     Indication: Anaplastic lymphoma kinase gene mutation
     Dosage: 2 MILLIGRAM/KILOGRAM, QD, FIRST-LINE
  2. PREDNISONE [Suspect]
     Active Substance: PREDNISONE
     Indication: Histiocytosis
  3. VINBLASTINE [Suspect]
     Active Substance: VINBLASTINE
     Indication: Anaplastic lymphoma kinase gene mutation
     Dosage: 0.2 MILLIGRAM/KILOGRAM, QW, FIRST-LINE
  4. VINBLASTINE [Suspect]
     Active Substance: VINBLASTINE
     Indication: Histiocytosis
  5. MERCAPTOPURINE [Suspect]
     Active Substance: MERCAPTOPURINE
     Indication: Anaplastic lymphoma kinase gene mutation
     Dosage: 1.3 MILLIGRAM/KILOGRAM, QD, FIRST-LINE
  6. MERCAPTOPURINE [Suspect]
     Active Substance: MERCAPTOPURINE
     Indication: Histiocytosis

REACTIONS (1)
  - Drug ineffective [Unknown]
